FAERS Safety Report 5113380-9 (Version None)
Quarter: 2006Q3

REPORT INFORMATION
  Report Type: 
  Country: None (occurrence: None)
  Receive Date: 20060920
  Receipt Date: 20060904
  Transmission Date: 20061208
  Serious: Yes (Hospitalization)
  Sender: FDA-Public Use
  Company Number: DSA_28674_2006

PATIENT
  Age: 76 Year
  Sex: Female

DRUGS (2)
  1. TAVOR /00273201/ [Suspect]
     Dosage: 3 MG ONCE PO
     Route: 048
     Dates: start: 20060904, end: 20060904
  2. SEROQUEL [Suspect]
     Dosage: 3 TAB ONCE PO
     Route: 048
     Dates: start: 20060904, end: 20060904

REACTIONS (3)
  - ACCIDENTAL OVERDOSE [None]
  - FATIGUE [None]
  - MEDICATION ERROR [None]
